FAERS Safety Report 5954711-7 (Version None)
Quarter: 2008Q4

REPORT INFORMATION
  Report Type: 
  Country: None (occurrence: None)
  Receive Date: 20081117
  Receipt Date: 20081113
  Transmission Date: 20090506
  Serious: Yes (Life-Threatening, Other)
  Sender: FDA-Public Use
  Company Number: PHBS2008AU06050

PATIENT
  Age: 25 Year
  Sex: Female

DRUGS (2)
  1. SYNTOCINON [Suspect]
     Indication: CAESAREAN SECTION
     Dosage: 20 IU/DAY
     Route: 042
     Dates: start: 20071220
  2. SYNTOCINON [Suspect]
     Dosage: UNK

REACTIONS (2)
  - DRUG INEFFECTIVE [None]
  - SUTURE INSERTION [None]
